FAERS Safety Report 5800112-1 (Version None)
Quarter: 2008Q3

REPORT INFORMATION
  Report Type: 
  Country: None (occurrence: None)
  Receive Date: 20080702
  Receipt Date: 20080702
  Transmission Date: 20090109
  Serious: Yes (Other)
  Sender: FDA-Public Use
  Company Number: None

PATIENT
  Age: 61 Year
  Sex: Female

DRUGS (1)
  1. DIGOXIN [Suspect]
     Indication: ATRIAL FIBRILLATION
     Dosage: TAKE 1 TABLET DAILY, SEVERAL YEARS

REACTIONS (4)
  - BLOOD PRESSURE DECREASED [None]
  - PRURITUS [None]
  - SKIN BURNING SENSATION [None]
  - SOMNOLENCE [None]
